FAERS Safety Report 18330849 (Version 3)
Quarter: 2020Q4

REPORT INFORMATION
  Report Type: Spontaneous
  Country: US (occurrence: US)
  Receive Date: 20200930
  Receipt Date: 20201111
  Transmission Date: 20210113
  Serious: No
  Sender: FDA-Public Use
  Company Number: US-JNJFOC-20200946725

PATIENT
  Sex: Male

DRUGS (3)
  1. INVEGA SUSTENNA [Suspect]
     Active Substance: PALIPERIDONE PALMITATE
     Indication: PRODUCT USED FOR UNKNOWN INDICATION
     Route: 030
  2. INVEGA SUSTENNA [Suspect]
     Active Substance: PALIPERIDONE PALMITATE
  3. INVEGA SUSTENNA [Suspect]
     Active Substance: PALIPERIDONE PALMITATE

REACTIONS (4)
  - Complication associated with device [Unknown]
  - Underdose [Unknown]
  - Injection site pain [Unknown]
  - Product leakage [Unknown]

NARRATIVE: CASE EVENT DATE: 2020
